FAERS Safety Report 7466042-7 (Version None)
Quarter: 2011Q2

REPORT INFORMATION
  Report Type: 
  Country: None (occurrence: None)
  Receive Date: 20110509
  Receipt Date: 20101201
  Transmission Date: 20111010
  Serious: Yes (Hospitalization, Other)
  Sender: FDA-Public Use
  Company Number: US-ALEXION-A201000514

PATIENT
  Sex: Female

DRUGS (9)
  1. SOLIRIS [Suspect]
     Indication: PAROXYSMAL NOCTURNAL HAEMOGLOBINURIA
     Dosage: 600 MG, QWK
     Route: 042
     Dates: start: 20070918, end: 20071009
  2. SOLIRIS [Suspect]
     Dosage: 900 MG, Q2WKS
     Route: 042
     Dates: start: 20071016
  3. AMBIEN [Concomitant]
     Dosage: 10 MG, QD
     Route: 048
  4. ZOFRAN [Concomitant]
     Dosage: UNK
     Route: 048
  5. ERRIN [Concomitant]
     Dosage: UNK
     Route: 048
  6. COLACE [Concomitant]
     Dosage: UNK
     Route: 048
  7. LEXAPRO [Concomitant]
     Dosage: 20 MG, QD
     Route: 048
  8. MS CONTIN [Concomitant]
     Dosage: 30 MG, BID
     Route: 048
  9. NEUPOGEN [Concomitant]
     Dosage: 2XWK

REACTIONS (3)
  - CONDITION AGGRAVATED [None]
  - SPLENOMEGALY [None]
  - PLATELET COUNT DECREASED [None]
